FAERS Safety Report 9621024 (Version 2)
Quarter: 2013Q4

REPORT INFORMATION
  Report Type: Report from Study
  Country: US (occurrence: US)
  Receive Date: 20131015
  Receipt Date: 20131111
  Transmission Date: 20140711
  Serious: Yes (Other)
  Sender: FDA-Public Use
  Company Number: US-JNJFOC-20131003327

PATIENT
  Sex: Male
  Weight: 96.62 kg

DRUGS (6)
  1. XARELTO [Suspect]
     Indication: PULMONARY THROMBOSIS
     Dosage: TWICE DAILY FOR 21 DAYS, STRENGTH: 15 MG
     Route: 048
     Dates: start: 201301, end: 2013
  2. XARELTO [Suspect]
     Indication: PULMONARY THROMBOSIS
     Dosage: STRENGTH: 20 MG
     Route: 048
     Dates: start: 2013
  3. XARELTO [Suspect]
     Indication: PULMONARY THROMBOSIS
     Dosage: STRENGTH: 20 MG
     Route: 048
     Dates: start: 2013, end: 201303
  4. TAMSULOSIN [Concomitant]
     Indication: PROSTATOMEGALY
     Dosage: STRENGTH: 0.4 MG
     Route: 048
     Dates: start: 2009
  5. SIMVASTATIN [Concomitant]
     Indication: BLOOD CHOLESTEROL
     Dosage: STRENGTH: 20 MG
     Route: 048
     Dates: start: 2005
  6. LOSARTAN [Concomitant]
     Indication: HYPERTENSION
     Dosage: STRENGTH: 50 MG
     Route: 048
     Dates: start: 2010

REACTIONS (4)
  - Haematuria [Recovered/Resolved]
  - Urinary tract infection [Recovered/Resolved]
  - Renal haemorrhage [Recovered/Resolved]
  - Arthritis [Not Recovered/Not Resolved]
